FAERS Safety Report 7883405-6 (Version None)
Quarter: 2011Q4

REPORT INFORMATION
  Report Type: 
  Country: None (occurrence: None)
  Receive Date: 20111031
  Receipt Date: 20111014
  Transmission Date: 20120403
  Serious: Yes (Hospitalization, Other)
  Sender: FDA-Public Use
  Company Number: THQ2011A05052

PATIENT
  Age: 84 Year
  Sex: Female

DRUGS (8)
  1. ACTOS [Suspect]
     Indication: DIABETES MELLITUS
     Dosage: 30 MG (1 D) PER ORAL
     Route: 048
     Dates: start: 20101125, end: 20110816
  2. AMILORIDE HYDROCHLORIDE [Concomitant]
  3. IRBESARTAN AND HYDROCHLOROTHIAZIDE [Concomitant]
  4. THIOGAMMA (THICOTIC ACID) [Concomitant]
  5. GLIMEPIRIDE [Concomitant]
  6. HEXAL (DEXACHLOROPHENE) [Concomitant]
  7. ADEXOR (TRIMETAZIDINE HYDROCHLORIDE) [Concomitant]
  8. AMLIPIN (AMLODIPINE BESILATE) [Concomitant]

REACTIONS (1)
  - BLADDER TRANSITIONAL CELL CARCINOMA [None]
